FAERS Safety Report 15471496 (Version 1)
Quarter: 2018Q4

REPORT INFORMATION
  Report Type: Spontaneous
  Country: US (occurrence: US)
  Receive Date: 20181007
  Receipt Date: 20181007
  Transmission Date: 20190205
  Serious: No
  Sender: FDA-Public Use
  Company Number: US-JNJFOC-20180916120

PATIENT
  Sex: Female
  Weight: 106.6 kg

DRUGS (13)
  1. TOPAMAX [Suspect]
     Active Substance: TOPIRAMATE
     Indication: IMPULSIVE BEHAVIOUR
     Route: 048
     Dates: start: 2005
  2. TOPAMAX [Suspect]
     Active Substance: TOPIRAMATE
     Indication: EATING DISORDER
     Route: 048
     Dates: end: 201801
  3. MELATONIN [Concomitant]
     Active Substance: MELATONIN
     Route: 065
  4. VITAMIN D3 [Concomitant]
     Active Substance: CHOLECALCIFEROL
     Route: 065
  5. MINIPRESS [Concomitant]
     Active Substance: PRAZOSIN HYDROCHLORIDE
     Dosage: IN PM
     Route: 065
  6. MINIPRESS [Concomitant]
     Active Substance: PRAZOSIN HYDROCHLORIDE
     Dosage: IN AM
     Route: 065
  7. TOPAMAX [Suspect]
     Active Substance: TOPIRAMATE
     Indication: IMPULSIVE BEHAVIOUR
     Route: 048
     Dates: start: 2003, end: 2005
  8. TOPAMAX [Suspect]
     Active Substance: TOPIRAMATE
     Indication: EATING DISORDER
     Route: 048
     Dates: start: 2005
  9. TOPAMAX [Suspect]
     Active Substance: TOPIRAMATE
     Indication: IMPULSIVE BEHAVIOUR
     Route: 048
     Dates: end: 201801
  10. CLONIDINE. [Concomitant]
     Active Substance: CLONIDINE
     Dosage: TWO OR THREE TIMES A DAY
     Route: 065
  11. KLONOPIN [Concomitant]
     Active Substance: CLONAZEPAM
     Route: 065
  12. VYVANSE [Concomitant]
     Active Substance: LISDEXAMFETAMINE DIMESYLATE
     Route: 065
  13. TOPAMAX [Suspect]
     Active Substance: TOPIRAMATE
     Indication: EATING DISORDER
     Route: 048
     Dates: start: 2003, end: 2005

REACTIONS (5)
  - Performance status decreased [Not Recovered/Not Resolved]
  - Product use in unapproved indication [Unknown]
  - Underdose [Unknown]
  - Weight increased [Unknown]
  - Off label use [Unknown]

NARRATIVE: CASE EVENT DATE: 2003
